FAERS Safety Report 4815726-5 (Version None)
Quarter: 2005Q4

REPORT INFORMATION
  Report Type: 
  Country: None (occurrence: None)
  Receive Date: 20051026
  Receipt Date: 20051010
  Transmission Date: 20060501
  Serious: Yes (Other)
  Sender: FDA-Public Use
  Company Number: US_0503114356

PATIENT
  Age: 62 Year
  Sex: Female

DRUGS (7)
  1. ZYPREXA [Suspect]
     Indication: ANXIETY
     Dosage: 5 MG DAY
     Dates: start: 20030204, end: 20040524
  2. XANAX [Concomitant]
  3. WELLBUTRIN [Concomitant]
  4. NORVASC [Concomitant]
  5. HYDROCHLOROTHIAZIDE [Concomitant]
  6. LISINOPRIL [Concomitant]
  7. AUGMENTIN '125' [Concomitant]

REACTIONS (5)
  - DIABETES MELLITUS [None]
  - DYSPNOEA [None]
  - GLYCOSYLATED HAEMOGLOBIN INCREASED [None]
  - RENAL FAILURE [None]
  - WEIGHT DECREASED [None]
